FAERS Safety Report 5233615-1 (Version None)
Quarter: 2007Q1

REPORT INFORMATION
  Report Type: 
  Country: None (occurrence: None)
  Receive Date: 20070206
  Receipt Date: 20070126
  Transmission Date: 20070707
  Serious: Yes (Other)
  Sender: FDA-Public Use
  Company Number: GXKR2007GB01239

PATIENT
  Age: 39 Year
  Sex: Male

DRUGS (3)
  1. MIRTAZAPINE [Suspect]
     Indication: DEPRESSION
     Dosage: 15 MG, QD, ORAL
     Route: 048
     Dates: start: 20061106, end: 20061218
  2. VENLAFAXINE HCL [Concomitant]
  3. ZOPICLONE (ZOPICLONE) [Concomitant]

REACTIONS (2)
  - AGGRESSION [None]
  - ANGER [None]
